FAERS Safety Report 5317734-7 (Version None)
Quarter: 2007Q2

REPORT INFORMATION
  Report Type: 
  Country: None (occurrence: None)
  Receive Date: 20070507
  Receipt Date: 20070425
  Transmission Date: 20071010
  Serious: Yes (Hospitalization)
  Sender: FDA-Public Use
  Company Number: RO-AMGEN-UK222630

PATIENT
  Sex: Male

DRUGS (4)
  1. PANITUMUMAB [Suspect]
     Indication: COLORECTAL CANCER
     Route: 041
     Dates: start: 20061221, end: 20070329
  2. IRINOTECAN HCL [Concomitant]
     Route: 041
     Dates: start: 20061221
  3. LEUCOVORIN CALCIUM [Concomitant]
     Route: 041
     Dates: start: 20061221
  4. FLUOROURACIL [Concomitant]
     Route: 041
     Dates: start: 20061221

REACTIONS (1)
  - ASTHENIA [None]
